FAERS Safety Report 13952032 (Version 1)
Quarter: 2017Q3

REPORT INFORMATION
  Report Type: Spontaneous
  Country: US (occurrence: US)
  Receive Date: 20170910
  Receipt Date: 20170910
  Transmission Date: 20171128
  Serious: Yes (Other)
  Sender: FDA-Public Use
  Company Number: US-BEH-2017083298

PATIENT
  Sex: Female
  Weight: 54.42 kg

DRUGS (16)
  1. ONE A DAY WOMEN^S [Concomitant]
     Active Substance: MINERALS\VITAMINS
  2. CALCIUM [Concomitant]
     Active Substance: CALCIUM
  3. ALPRAZOLAM. [Concomitant]
     Active Substance: ALPRAZOLAM
  4. VITAMIN C [Concomitant]
     Active Substance: ASCORBIC ACID
  5. LEVOTHYROXINE. [Concomitant]
     Active Substance: LEVOTHYROXINE
  6. HIZENTRA [Suspect]
     Active Substance: HUMAN IMMUNOGLOBULIN G
     Dosage: UNK
     Route: 058
  7. MAGNESIUM [Concomitant]
     Active Substance: MAGNESIUM
  8. HIZENTRA [Suspect]
     Active Substance: HUMAN IMMUNOGLOBULIN G
     Indication: IMMUNODEFICIENCY COMMON VARIABLE
     Dosage: 6 G, QW
     Route: 058
     Dates: start: 20130321
  9. VITAMIN B12 [Concomitant]
     Active Substance: CYANOCOBALAMIN
  10. ACETAMINOPHEN. [Concomitant]
     Active Substance: ACETAMINOPHEN
  11. CYCLOBENZAPRINE. [Concomitant]
     Active Substance: CYCLOBENZAPRINE
  12. SYMBICORT [Concomitant]
     Active Substance: BUDESONIDE\FORMOTEROL FUMARATE DIHYDRATE
  13. FERAHEME [Concomitant]
     Active Substance: FERUMOXYTOL NON-STOICHIOMETRIC MAGNETITE
  14. VITAMIN D3 [Concomitant]
     Active Substance: CHOLECALCIFEROL
  15. FOLIC ACID. [Concomitant]
     Active Substance: FOLIC ACID
  16. SERTRALINE [Concomitant]
     Active Substance: SERTRALINE HYDROCHLORIDE

REACTIONS (6)
  - Decreased appetite [Unknown]
  - Gastrointestinal disorder [Unknown]
  - Gastrointestinal infection [Unknown]
  - Abdominal discomfort [Unknown]
  - Fluid intake reduced [Unknown]
  - Diarrhoea [Unknown]
